FAERS Safety Report 9310535 (Version 1)
Quarter: 2013Q2

REPORT INFORMATION
  Report Type: Spontaneous
  Country: US (occurrence: US)
  Receive Date: 20130527
  Receipt Date: 20130527
  Transmission Date: 20140414
  Serious: No
  Sender: FDA-Public Use
  Company Number: US-PFIZER INC-2013160090

PATIENT
  Sex: Female

DRUGS (2)
  1. GABAPENTIN [Suspect]
     Indication: NEURALGIA
     Dosage: 300MG THREE CAPSULES IN MORNING, 300MG TWO CAPSULES IN NOON AND 300MG THREE CAPSULES
     Route: 048
     Dates: start: 2010
  2. GABAPENTIN [Suspect]
     Dosage: 300MG THREE CAPSULES IN MORNING, 300MG TWO CAPSULES IN NOON AND 300MG THREE CAPSULES
     Route: 048

REACTIONS (3)
  - Drug ineffective [Unknown]
  - Pain [Unknown]
  - Drug effect incomplete [Unknown]
